FAERS Safety Report 16908309 (Version 2)
Quarter: 2020Q3

REPORT INFORMATION
  Report Type: Report from Study
  Country: FR (occurrence: FR)
  Receive Date: 20191011
  Receipt Date: 20200130
  Transmission Date: 20201105
  Serious: Yes (Other)
  Sender: FDA-Public Use
  Company Number: FR-ASTRAZENECA-2019SF40800

PATIENT
  Age: 25678 Day
  Sex: Male
  Weight: 88 kg

DRUGS (2)
  1. DURVALUMAB. [Suspect]
     Active Substance: DURVALUMAB
     Indication: RENAL CANCER METASTATIC
     Dosage: 750.0MG EVERY CYCLE
     Route: 042
     Dates: start: 20180619, end: 20190320
  2. AMP?514. [Suspect]
     Active Substance: AMP-514
     Indication: RENAL CANCER METASTATIC
     Dosage: 1750.0MG EVERY CYCLE
     Route: 042
     Dates: start: 20180619, end: 20190320

REACTIONS (2)
  - Keratitis [Not Recovered/Not Resolved]
  - Conjunctivitis [Not Recovered/Not Resolved]

NARRATIVE: CASE EVENT DATE: 20190227
